FAERS Safety Report 7074845-6 (Version None)
Quarter: 2010Q4

REPORT INFORMATION
  Report Type: 
  Country: None (occurrence: None)
  Receive Date: 20101029
  Receipt Date: 20101025
  Transmission Date: 20110411
  Serious: Yes (Death, Hospitalization)
  Sender: FDA-Public Use
  Company Number: KR-ELI_LILLY_AND_COMPANY-KR201010005561

PATIENT
  Age: 57 Year
  Sex: Male

DRUGS (2)
  1. HUMALOG MIX 75/25 [Suspect]
     Indication: DIABETES MELLITUS
     Dosage: 44U MORNING, 22U EVENING
     Dates: start: 20100813, end: 20101024
  2. HUMALOG MIX 75/25 [Suspect]
     Dosage: 22 U, EACH EVENING
     Dates: start: 20100813, end: 20101024

REACTIONS (3)
  - ASTHENIA [None]
  - DYSPNOEA [None]
  - RESPIRATORY FAILURE [None]
